FAERS Safety Report 9351175 (Version 1)
Quarter: 2013Q2

REPORT INFORMATION
  Report Type: Spontaneous
  Country: US (occurrence: US)
  Receive Date: 20130617
  Receipt Date: 20130617
  Transmission Date: 20140414
  Serious: Yes (Hospitalization, Other)
  Sender: FDA-Public Use
  Company Number: US-BAYER-2013-070896

PATIENT
  Age: 37 Year
  Sex: Female

DRUGS (37)
  1. YAZ [Suspect]
  2. YASMIN [Suspect]
  3. OCELLA [Suspect]
  4. ACETAMINOPHEN W/CODEINE [Concomitant]
  5. ZOLPIDEM [Concomitant]
  6. PHENTERMINE [Concomitant]
  7. ASTEPRO [Concomitant]
  8. SEROQUEL [Concomitant]
  9. FAMOTIDINE [Concomitant]
  10. IBUPROFEN [Concomitant]
  11. FUROSEMIDE [Concomitant]
  12. FLUCONAZOLE [Concomitant]
  13. FLUTICASONE [Concomitant]
  14. METRONIDAZOLE [Concomitant]
  15. HYDROCODONE W/ACETAMINOPHEN [Concomitant]
  16. CIPRO [Concomitant]
  17. CLARITIN [Concomitant]
  18. ADIPEX-P [Concomitant]
  19. MIRALAX [Concomitant]
  20. VITAMIN B12 [Concomitant]
  21. LAMICTAL [Concomitant]
  22. LAMOTRIGINE [Concomitant]
  23. KLONOPIN [Concomitant]
  24. NAPROSYN [Concomitant]
  25. TYLENOL WITH CODEINE [Concomitant]
  26. ZOFRAN [Concomitant]
  27. XANAX [Concomitant]
  28. EFFEXOR [Concomitant]
  29. PROTONIX [Concomitant]
  30. CELEXA [Concomitant]
  31. B-COMPLEX [VITAMIN B NOS] [Concomitant]
  32. COLECALCIFEROL [Concomitant]
  33. ABILIFY [Concomitant]
  34. PRILOSEC [Concomitant]
  35. NORCO [Concomitant]
  36. CARAFATE [Concomitant]
  37. MOTRIN [Concomitant]

REACTIONS (3)
  - Pulmonary embolism [None]
  - Thrombosed varicose vein [None]
  - Thrombophlebitis superficial [None]
